FAERS Safety Report 23068103 (Version 1)
Quarter: 2023Q4

REPORT INFORMATION
  Report Type: Report from Study
  Country: CO (occurrence: CO)
  Receive Date: 20231016
  Receipt Date: 20231016
  Transmission Date: 20240110
  Serious: Yes (Other)
  Sender: FDA-Public Use
  Company Number: CO-JNJFOC-20231032375

PATIENT
  Age: 68 Year
  Sex: Female
  Weight: 62 kg

DRUGS (1)
  1. DARATUMUMAB [Suspect]
     Active Substance: DARATUMUMAB
     Indication: Plasma cell myeloma
     Dosage: LAST DRUG APPLICATION: 4-OCT-2023
     Route: 041
     Dates: start: 20230517

REACTIONS (1)
  - Transplant [Not Recovered/Not Resolved]

NARRATIVE: CASE EVENT DATE: 20231008
